FAERS Safety Report 14016072 (Version 1)
Quarter: 2017Q3

REPORT INFORMATION
  Report Type: Report from Study
  Country: US (occurrence: US)
  Receive Date: 20170927
  Receipt Date: 20170927
  Transmission Date: 20171128
  Serious: Yes (Other)
  Sender: FDA-Public Use
  Company Number: US-BIOGEN-2013BI021010

PATIENT
  Age: 39 Year
  Sex: Male

DRUGS (5)
  1. AVONEX [Suspect]
     Active Substance: INTERFERON BETA-1A
     Route: 065
  2. AVONEX [Suspect]
     Active Substance: INTERFERON BETA-1A
     Route: 030
     Dates: start: 20060607
  3. AVONEX [Suspect]
     Active Substance: INTERFERON BETA-1A
     Route: 030
     Dates: start: 20080505
  4. AVONEX [Suspect]
     Active Substance: INTERFERON BETA-1A
     Indication: MULTIPLE SCLEROSIS
     Route: 030
     Dates: start: 19960401, end: 20030423
  5. AVONEX [Suspect]
     Active Substance: INTERFERON BETA-1A
     Route: 065
     Dates: start: 20161116

REACTIONS (14)
  - Anger [Recovered/Resolved]
  - Balance disorder [Unknown]
  - Anxiety [Recovered/Resolved]
  - Dysarthria [Not Recovered/Not Resolved]
  - Depressed mood [Recovered/Resolved]
  - Tremor [Not Recovered/Not Resolved]
  - Blindness unilateral [Recovered/Resolved]
  - Visual impairment [Recovered/Resolved]
  - Stress [Unknown]
  - Injection site induration [Recovered/Resolved]
  - Pain [Unknown]
  - Drug ineffective [Not Recovered/Not Resolved]
  - Influenza like illness [Not Recovered/Not Resolved]
  - Multiple sclerosis relapse [Recovered/Resolved]

NARRATIVE: CASE EVENT DATE: 19960401
